FAERS Safety Report 20368215 (Version 3)
Quarter: 2022Q1

REPORT INFORMATION
  Report Type: Spontaneous
  Country: GB (occurrence: GB)
  Receive Date: 20220124
  Receipt Date: 20220203
  Transmission Date: 20220424
  Serious: No
  Sender: FDA-Public Use
  Company Number: GB-CELLTRION INC.-2022GB000482

PATIENT

DRUGS (1)
  1. INFLIXIMAB [Suspect]
     Active Substance: INFLIXIMAB
     Indication: Crohn^s disease
     Dosage: 120 MG, 2 WEEKLY (EVERY 2 WEEKS)
     Route: 058

REACTIONS (6)
  - Inflammation [Unknown]
  - Discomfort [Unknown]
  - Back pain [Unknown]
  - Dizziness [Unknown]
  - Peripheral swelling [Unknown]
  - Intentional dose omission [Unknown]
